FAERS Safety Report 6522578-4 (Version None)
Quarter: 2009Q4

REPORT INFORMATION
  Report Type: 
  Country: None (occurrence: None)
  Receive Date: 20091230
  Receipt Date: 20091218
  Transmission Date: 20100525
  Serious: Yes (Other)
  Sender: FDA-Public Use
  Company Number: CA-AMGEN-KDL337965

PATIENT
  Sex: Male
  Weight: 136.2 kg

DRUGS (12)
  1. ENBREL [Suspect]
     Indication: PSORIASIS
     Route: 058
     Dates: start: 20090225, end: 20091125
  2. METFORMIN [Concomitant]
  3. LANTUS [Concomitant]
  4. ASPIRIN [Concomitant]
  5. NORVASC [Concomitant]
  6. MICARDIS [Concomitant]
  7. HYDROCHLOROTHIAZIDE [Concomitant]
  8. METOPROLOL TARTRATE [Concomitant]
  9. NITROGLYCERIN [Concomitant]
  10. CRESTOR [Concomitant]
  11. EZETROL [Concomitant]
  12. LORATADINE [Concomitant]

REACTIONS (5)
  - ANGINA PECTORIS [None]
  - CARDIAC FAILURE CONGESTIVE [None]
  - COUGH [None]
  - NASOPHARYNGITIS [None]
  - OEDEMA PERIPHERAL [None]
